FAERS Safety Report 11585502 (Version 2)
Quarter: 2015Q4

REPORT INFORMATION
  Report Type: Spontaneous
  Country: EG (occurrence: EG)
  Receive Date: 20151001
  Receipt Date: 20151002
  Transmission Date: 20160304
  Serious: Yes (Hospitalization, Other)
  Sender: FDA-Public Use
  Company Number: EG-PFIZER INC-2015329105

PATIENT

DRUGS (2)
  1. LYRICA [Suspect]
     Active Substance: PREGABALIN
     Dosage: 300 MG, SINGLE
  2. LYRICA [Suspect]
     Active Substance: PREGABALIN
     Indication: BACK PAIN
     Dosage: 75 MG, 2X/DAY

REACTIONS (3)
  - Arrhythmia [Unknown]
  - Cardiac arrest [Unknown]
  - Chest pain [Unknown]
